FAERS Safety Report 24435746 (Version 1)
Quarter: 2024Q4

REPORT INFORMATION
  Report Type: Spontaneous
  Country: US (occurrence: US)
  Receive Date: 20241015
  Receipt Date: 20241015
  Transmission Date: 20250114
  Serious: No
  Sender: CHURCH & DWIGHT
  Company Number: US-ChurchDwight-2024-CDW-01664

PATIENT
  Age: 68 Year
  Sex: Female

DRUGS (13)
  1. ZICAM COLD AND FLU-LIKE SYMPTOMS [Suspect]
     Active Substance: ECHINACEA ANGUSTIFOLIA\SAMBUCUS NIGRA FLOWERING TOP\ZINC ACETATE ANHYDROUS\ZINC GLUCONATE
     Indication: Nasopharyngitis
     Route: 048
  2. ZICAM COLD AND FLU-LIKE SYMPTOMS [Suspect]
     Active Substance: ECHINACEA ANGUSTIFOLIA\SAMBUCUS NIGRA FLOWERING TOP\ZINC ACETATE ANHYDROUS\ZINC GLUCONATE
     Indication: Oropharyngeal pain
  3. ZICAM COLD AND FLU-LIKE SYMPTOMS [Suspect]
     Active Substance: ECHINACEA ANGUSTIFOLIA\SAMBUCUS NIGRA FLOWERING TOP\ZINC ACETATE ANHYDROUS\ZINC GLUCONATE
     Indication: Sneezing
  4. ZICAM COLD AND FLU-LIKE SYMPTOMS [Suspect]
     Active Substance: ECHINACEA ANGUSTIFOLIA\SAMBUCUS NIGRA FLOWERING TOP\ZINC ACETATE ANHYDROUS\ZINC GLUCONATE
     Indication: Rhinorrhoea
  5. SYNTHROID [Concomitant]
     Active Substance: LEVOTHYROXINE SODIUM
     Indication: Product used for unknown indication
     Route: 065
  6. AMLODIPINE [Concomitant]
     Active Substance: AMLODIPINE BESYLATE
     Indication: Product used for unknown indication
     Route: 065
  7. HYDROCHLOROTHIAZIDE [Concomitant]
     Active Substance: HYDROCHLOROTHIAZIDE
     Indication: Product used for unknown indication
     Route: 065
  8. CLONIDINE [Concomitant]
     Active Substance: CLONIDINE
     Indication: Product used for unknown indication
     Route: 065
  9. LOSARTAN [Concomitant]
     Active Substance: LOSARTAN
     Indication: Product used for unknown indication
     Route: 065
  10. LIPITOR [Concomitant]
     Active Substance: ATORVASTATIN CALCIUM
     Indication: Product used for unknown indication
     Route: 065
  11. POTASSIUM [Concomitant]
     Active Substance: POTASSIUM
     Indication: Product used for unknown indication
     Route: 065
  12. TRAZODONE [Concomitant]
     Active Substance: TRAZODONE HYDROCHLORIDE
     Indication: Product used for unknown indication
     Route: 065
  13. VENLAFAXINE [Concomitant]
     Active Substance: VENLAFAXINE HYDROCHLORIDE
     Indication: Product used for unknown indication
     Route: 065

REACTIONS (4)
  - Ageusia [Recovered/Resolved]
  - Hypoaesthesia oral [Recovered/Resolved]
  - Product use complaint [Unknown]
  - Dysgeusia [Recovered/Resolved]
